FAERS Safety Report 21774002 (Version 1)
Quarter: 2022Q4

REPORT INFORMATION
  Report Type: Spontaneous
  Country: IN (occurrence: IN)
  Receive Date: 20221223
  Receipt Date: 20221223
  Transmission Date: 20230113
  Serious: Yes (Life-Threatening, Hospitalization, Other)
  Sender: FDA-Public Use
  Company Number: IN-NAPPMUNDI-GBR-2022-0103995

PATIENT
  Age: 32 Year
  Sex: Male

DRUGS (1)
  1. THEOPHYLLINE [Suspect]
     Active Substance: THEOPHYLLINE
     Indication: Asthma
     Dosage: 400 MILLIGRAM, ONCE DAILY
     Route: 065
     Dates: start: 202210

REACTIONS (1)
  - Stevens-Johnson syndrome [Recovered/Resolved]
